FAERS Safety Report 7824073-9 (Version None)
Quarter: 2011Q4

REPORT INFORMATION
  Report Type: 
  Country: None (occurrence: None)
  Receive Date: 20111019
  Receipt Date: 20111013
  Transmission Date: 20120403
  Serious: Yes (Other)
  Sender: FDA-Public Use
  Company Number: PHHY2011BR91254

PATIENT
  Age: 10 Year
  Sex: Male

DRUGS (1)
  1. RITALIN [Suspect]
     Indication: AUTISM
     Dosage: HALF A TABLET MORNING AND HALF A TABLET AFTER LUNCH

REACTIONS (5)
  - AGGRESSION [None]
  - ANGER [None]
  - HEAD BANGING [None]
  - SWOLLEN TONGUE [None]
  - EXCESSIVE EYE BLINKING [None]
